FAERS Safety Report 8608619-9 (Version None)
Quarter: 2012Q3

REPORT INFORMATION
  Report Type: 
  Country: None (occurrence: None)
  Receive Date: 20120806
  Receipt Date: 20120725
  Transmission Date: 20120928
  Serious: Yes (Other)
  Sender: FDA-Public Use
  Company Number: DSA_58795_2012

PATIENT

DRUGS (1)
  1. WELLBUTRIN [Suspect]
     Indication: DEPRESSION
     Dosage: (150 MG, DAILY ORAL)
     Route: 048
     Dates: start: 20120505, end: 20120512

REACTIONS (5)
  - URTICARIA [None]
  - FEELING HOT [None]
  - PRODUCT QUALITY ISSUE [None]
  - HEADACHE [None]
  - MALAISE [None]
